FAERS Safety Report 13384588 (Version 1)
Quarter: 2017Q1

REPORT INFORMATION
  Report Type: Spontaneous
  Country: US (occurrence: US)
  Receive Date: 20170329
  Receipt Date: 20170329
  Transmission Date: 20170429
  Serious: Yes (Hospitalization, Disabling)
  Sender: FDA-Public Use
  Company Number: None

PATIENT
  Age: 75 Year
  Sex: Female
  Weight: 51.3 kg

DRUGS (17)
  1. VITAMIN D2 [Concomitant]
     Active Substance: ERGOCALCIFEROL
  2. COLACE [Concomitant]
     Active Substance: DOCUSATE SODIUM
  3. DEPAKOTE [Concomitant]
     Active Substance: DIVALPROEX SODIUM
  4. CALCIUM CARBONATE. [Concomitant]
     Active Substance: CALCIUM CARBONATE
  5. DUCOSATE [Concomitant]
  6. VITAMIN B12 [Concomitant]
     Active Substance: CYANOCOBALAMIN
  7. LORAZEPAM. [Concomitant]
     Active Substance: LORAZEPAM
  8. HALOPERIDOL. [Concomitant]
     Active Substance: HALOPERIDOL
  9. SENNA [Concomitant]
     Active Substance: SENNA LEAF\SENNOSIDES\SENNOSIDES A AND B
  10. PRESERVISION [Concomitant]
     Active Substance: MINERALS\VITAMINS
  11. OMEPRAZOLE. [Concomitant]
     Active Substance: OMEPRAZOLE
  12. OLANZAPINE. [Suspect]
     Active Substance: OLANZAPINE
     Indication: AGGRESSION
     Dosage: ?          QUANTITY:1 CAPSULE(S);?
     Route: 048
  13. HALOPERIDOL. [Suspect]
     Active Substance: HALOPERIDOL
     Indication: AGITATION
     Dosage: ?          QUANTITY:2 CAPSULE(S);?
     Route: 048
  14. OLANZAPINE. [Concomitant]
     Active Substance: OLANZAPINE
  15. POLYTHYLENE [Concomitant]
  16. TYLENOL [Concomitant]
     Active Substance: ACETAMINOPHEN
  17. HALOPERIDOL. [Suspect]
     Active Substance: HALOPERIDOL
     Indication: AGGRESSION
     Dosage: ?          QUANTITY:2 CAPSULE(S);?
     Route: 048

REACTIONS (7)
  - Confusional state [None]
  - Speech disorder [None]
  - Urinary tract infection [None]
  - Insomnia [None]
  - Cardiac failure [None]
  - Activities of daily living impaired [None]
  - Constipation [None]

NARRATIVE: CASE EVENT DATE: 20170329
